FAERS Safety Report 9632738 (Version 1)
Quarter: 2013Q4

REPORT INFORMATION
  Report Type: Spontaneous
  Country: FR (occurrence: FR)
  Receive Date: 20131018
  Receipt Date: 20131018
  Transmission Date: 20140711
  Serious: Yes (Death, Other)
  Sender: FDA-Public Use
  Company Number: FR-UCBSA-100187

PATIENT
  Age: 59 Year
  Sex: Male

DRUGS (9)
  1. VIMPAT [Suspect]
     Indication: EPILEPSY
     Route: 048
     Dates: start: 20130827, end: 20130914
  2. VIMPAT [Suspect]
     Indication: EPILEPSY
     Route: 048
     Dates: start: 20130822, end: 20130826
  3. VIMPAT [Suspect]
     Indication: EPILEPSY
     Route: 048
     Dates: start: 20130819, end: 20130821
  4. KEPPRA [Suspect]
     Route: 048
     Dates: start: 2013, end: 20130914
  5. KEPPRA [Suspect]
     Route: 048
     Dates: end: 2013
  6. SOLUPRED [Suspect]
     Dosage: DOSE: 65 MG
     Route: 048
     Dates: start: 201308, end: 20130914
  7. ATARAX [Concomitant]
  8. CALCIPRAT [Concomitant]
  9. STILNOX [Concomitant]

REACTIONS (1)
  - Suicidal ideation [Fatal]
